APPROVED DRUG PRODUCT: CIN-QUIN
Active Ingredient: QUINIDINE SULFATE
Strength: 200MG
Dosage Form/Route: CAPSULE;ORAL
Application: A085296 | Product #001
Applicant: SOLVAY PHARMACEUTICALS
Approved: Approved Prior to Jan 1, 1982 | RLD: No | RS: No | Type: DISCN